FAERS Safety Report 9208644 (Version 1)
Quarter: 2013Q2

REPORT INFORMATION
  Report Type: Spontaneous
  Country: ES (occurrence: ES)
  Receive Date: 20130404
  Receipt Date: 20130404
  Transmission Date: 20140414
  Serious: Yes (Other)
  Sender: FDA-Public Use
  Company Number: ES-PFIZER INC-2013104097

PATIENT
  Age: 60 Year
  Sex: Male

DRUGS (1)
  1. CAVERJECT [Suspect]
     Indication: ERECTILE DYSFUNCTION
     Dosage: 10 UG, 1X/DAY
     Route: 017
     Dates: start: 20130203, end: 20130203

REACTIONS (1)
  - Syncope [Recovered/Resolved]
